FAERS Safety Report 8242528-2 (Version None)
Quarter: 2012Q1

REPORT INFORMATION
  Report Type: 
  Country: None (occurrence: None)
  Receive Date: 20120329
  Receipt Date: 20120316
  Transmission Date: 20120608
  Serious: Yes (Hospitalization)
  Sender: FDA-Public Use
  Company Number: PHHO2012US004617

PATIENT
  Sex: Male
  Weight: 185 kg

DRUGS (9)
  1. LEVOXYL [Concomitant]
     Dosage: UNK
     Dates: start: 20110328
  2. AFINITOR [Suspect]
     Indication: THYROID CANCER
     Dosage: 10 MG, QD
     Route: 048
     Dates: start: 20110707
  3. NITROGLYCERIN [Concomitant]
     Dosage: UNK
     Dates: start: 20110809
  4. LOMOTIL [Concomitant]
     Dosage: UNK
     Dates: start: 20110809
  5. LASIX [Concomitant]
     Dosage: UNK
     Dates: start: 20110809
  6. FERROUS SULFATE TAB [Concomitant]
     Dosage: UNK
     Dates: start: 20110809
  7. ASPIRIN [Concomitant]
     Dosage: UNK
     Dates: start: 20110809
  8. CELEXA [Concomitant]
     Dosage: UNK
     Dates: start: 20110819
  9. SORAFENIB [Suspect]
     Indication: THYROID CANCER
     Dosage: 400 MG, BID
     Route: 048
     Dates: start: 20110707

REACTIONS (1)
  - ARTERIOSPASM CORONARY [None]
